FAERS Safety Report 21995280 (Version 1)
Quarter: 2023Q1

REPORT INFORMATION
  Report Type: Spontaneous
  Country: JP (occurrence: JP)
  Receive Date: 20230215
  Receipt Date: 20230215
  Transmission Date: 20230418
  Serious: Yes (Death)
  Sender: FDA-Public Use
  Company Number: JP-Eisai-202214397_DVG_P_1

PATIENT
  Age: 80 Year
  Sex: Male

DRUGS (2)
  1. DAYVIGO [Suspect]
     Active Substance: LEMBOREXANT
     Indication: Insomnia
     Route: 048
     Dates: end: 20230203
  2. FILGOTINIB [Concomitant]
     Active Substance: FILGOTINIB
     Indication: Rheumatoid arthritis
     Route: 048
     Dates: start: 20220304, end: 20230203

REACTIONS (3)
  - Asphyxia [Fatal]
  - Fall [Unknown]
  - Aspiration [Unknown]

NARRATIVE: CASE EVENT DATE: 20230203
